FAERS Safety Report 18311981 (Version 1)
Quarter: 2020Q3

REPORT INFORMATION
  Report Type: Spontaneous
  Country: JP (occurrence: JP)
  Receive Date: 20200925
  Receipt Date: 20200925
  Transmission Date: 20201103
  Serious: Yes (Death)
  Sender: FDA-Public Use
  Company Number: None

PATIENT
  Age: 55 Year
  Sex: Male
  Weight: 54 kg

DRUGS (1)
  1. HALCION [Suspect]
     Active Substance: TRIAZOLAM
     Indication: INSOMNIA
     Route: 048

REACTIONS (11)
  - Fear [None]
  - Completed suicide [None]
  - Depressed mood [None]
  - Initial insomnia [None]
  - Mood altered [None]
  - Asthenia [None]
  - Agitation [None]
  - Decreased appetite [None]
  - Insomnia [None]
  - Anxiety [None]
  - Depression [None]

NARRATIVE: CASE EVENT DATE: 20180826
